FAERS Safety Report 4593793-4 (Version None)
Quarter: 2005Q1

REPORT INFORMATION
  Report Type: 
  Country: None (occurrence: None)
  Receive Date: 20050301
  Receipt Date: 20050223
  Transmission Date: 20050727
  Serious: Yes (Death, Other)
  Sender: FDA-Public Use
  Company Number: PHBS2005DE02816

PATIENT
  Age: 40 Year

DRUGS (9)
  1. CYCLOSPORINE [Suspect]
     Indication: BONE MARROW TRANSPLANT
     Route: 065
  2. MYCOPHENOLATE MOFETIL [Suspect]
     Indication: BONE MARROW TRANSPLANT
     Route: 065
  3. MELPHALAN [Suspect]
  4. THALIDOMIDE [Suspect]
  5. CYCLOPHOSPHAMIDE [Suspect]
  6. ETOPOSIDE [Suspect]
  7. DEXAMETHASONE [Suspect]
  8. FLUDARABINE [Suspect]
  9. IRRADIATION [Suspect]

REACTIONS (5)
  - ADENOVIRUS INFECTION [None]
  - CYTOMEGALOVIRUS INFECTION [None]
  - DIARRHOEA [None]
  - PYREXIA [None]
  - THROMBOTIC MICROANGIOPATHY [None]
